FAERS Safety Report 12456742 (Version 1)
Quarter: 2016Q2

REPORT INFORMATION
  Report Type: Report from Study
  Country: JP (occurrence: JP)
  Receive Date: 20160610
  Receipt Date: 20160610
  Transmission Date: 20160815
  Serious: Yes (Death)
  Sender: FDA-Public Use
  Company Number: JP-EISAI MEDICAL RESEARCH-EC-2016-017592

PATIENT
  Age: 59 Year
  Sex: Female
  Weight: 56 kg

DRUGS (17)
  1. HALAVEN [Suspect]
     Active Substance: ERIBULIN MESYLATE
     Indication: TUBULAR BREAST CARCINOMA
     Route: 041
     Dates: start: 20150716, end: 20150806
  2. ALOSENN [Concomitant]
     Active Substance: SENNA LEAF
  3. LASIX [Concomitant]
     Active Substance: FUROSEMIDE
  4. ZOLENDRONIC ACID HYDRATE [Concomitant]
  5. PROMAC [Concomitant]
     Active Substance: NITROFURANTOIN
  6. KENALOG [Concomitant]
     Active Substance: TRIAMCINOLONE ACETONIDE
  7. GOSHAJINKIGAN [Concomitant]
     Active Substance: HERBALS
  8. CINAL [Concomitant]
     Active Substance: ASCORBIC ACID\CALCIUM PANTOTHENATE
  9. FENTOS [Concomitant]
     Active Substance: FENTANYL
  10. KENALOG [Concomitant]
     Active Substance: TRIAMCINOLONE ACETONIDE
  11. CEPHARANTHINE [Concomitant]
     Active Substance: CEPHARANTHINE
  12. PYDOXAL [Concomitant]
     Active Substance: PYRIDOXAL
  13. HALAVEN [Suspect]
     Active Substance: ERIBULIN MESYLATE
     Route: 041
     Dates: start: 20150813, end: 20150917
  14. MAGMITT [Concomitant]
     Active Substance: MAGNESIUM OXIDE
  15. FERROMIA [Concomitant]
     Active Substance: FERROUS CITRATE
  16. LEUCON [Concomitant]
  17. OXYCONTIN [Concomitant]
     Active Substance: OXYCODONE HYDROCHLORIDE

REACTIONS (2)
  - Leukopenia [Fatal]
  - Neutropenia [Fatal]

NARRATIVE: CASE EVENT DATE: 20150924
